FAERS Safety Report 23643402 (Version 2)
Quarter: 2025Q1

REPORT INFORMATION
  Report Type: Report from Study
  Country: CA (occurrence: CA)
  Receive Date: 20240318
  Receipt Date: 20250109
  Transmission Date: 20250409
  Serious: No
  Sender: TAKEDA
  Company Number: CA-TAKEDA-2024TUS023317

PATIENT
  Age: 58 Year
  Sex: Male

DRUGS (3)
  1. VEDOLIZUMAB [Suspect]
     Active Substance: VEDOLIZUMAB
     Indication: Crohn^s disease
  2. VEDOLIZUMAB [Suspect]
     Active Substance: VEDOLIZUMAB
     Dosage: 300 MILLIGRAM, Q4WEEKS
     Dates: start: 20220916
  3. COLESEVELAM [Suspect]
     Active Substance: COLESEVELAM
     Indication: Product used for unknown indication

REACTIONS (8)
  - Malaise [Unknown]
  - Off label use [Unknown]
  - Diarrhoea [Unknown]
  - Frequent bowel movements [Unknown]
  - Impaired work ability [Unknown]
  - Social problem [Unknown]
  - Haemorrhoids [Not Recovered/Not Resolved]
  - Arthralgia [Unknown]

NARRATIVE: CASE EVENT DATE: 20220916
